FAERS Safety Report 11279251 (Version 1)
Quarter: 2015Q3

REPORT INFORMATION
  Report Type: Spontaneous
  Country: PL (occurrence: PL)
  Receive Date: 20150717
  Receipt Date: 20150717
  Transmission Date: 20151125
  Serious: Yes (Death, Hospitalization, Other)
  Sender: FDA-Public Use
  Company Number: PHHY2015PL076536

PATIENT
  Age: 68 Year
  Sex: Female

DRUGS (1)
  1. AFINITOR [Suspect]
     Active Substance: EVEROLIMUS
     Indication: PANCREATIC NEUROENDOCRINE TUMOUR
     Dosage: 10 MG, QD
     Route: 048
     Dates: start: 20150513, end: 20150621

REACTIONS (12)
  - Metastases to liver [Unknown]
  - Kidney enlargement [Unknown]
  - Localised intraabdominal fluid collection [Unknown]
  - Mass [Unknown]
  - Lymphadenopathy [Unknown]
  - Pelvic fluid collection [Unknown]
  - Ascites [Unknown]
  - Pneumonia [Unknown]
  - Pancreatic neoplasm [Unknown]
  - Death [Fatal]
  - Hepatomegaly [Unknown]
  - Metastases to lung [Unknown]

NARRATIVE: CASE EVENT DATE: 20150624
